FAERS Safety Report 12598100 (Version 2)
Quarter: 2016Q3

REPORT INFORMATION
  Report Type: Spontaneous
  Country: JP (occurrence: JP)
  Receive Date: 20160726
  Receipt Date: 20160729
  Transmission Date: 20161109
  Serious: Yes (Other)
  Sender: FDA-Public Use
  Company Number: JP-B.I. PHARMACEUTICALS,INC./RIDGEFIELD-2016-BI-48105NB

PATIENT
  Sex: Female

DRUGS (3)
  1. MICARDIS [Suspect]
     Active Substance: TELMISARTAN
     Dosage: 20 MG
     Route: 048
  2. MICARDIS [Suspect]
     Active Substance: TELMISARTAN
     Indication: PRODUCT USED FOR UNKNOWN INDICATION
     Dosage: 40 MG
     Route: 048
  3. MICARDIS [Suspect]
     Active Substance: TELMISARTAN
     Dosage: 40 MG
     Route: 048

REACTIONS (3)
  - Tachycardia [Unknown]
  - Palpitations [Unknown]
  - Blood pressure increased [Unknown]
